FAERS Safety Report 8238176-0 (Version None)
Quarter: 2012Q1

REPORT INFORMATION
  Report Type: 
  Country: None (occurrence: None)
  Receive Date: 20120327
  Receipt Date: 20120321
  Transmission Date: 20120608
  Serious: Yes (Hospitalization)
  Sender: FDA-Public Use
  Company Number: US-AMGEN-USASP2012018504

PATIENT

DRUGS (2)
  1. NEULASTA [Suspect]
     Indication: NEUTROPENIA
  2. ANTINEOPLASTIC AGENTS [Concomitant]

REACTIONS (1)
  - NEUTROPENIA [None]
